FAERS Safety Report 8225570-7 (Version None)
Quarter: 2012Q1

REPORT INFORMATION
  Report Type: 
  Country: None (occurrence: None)
  Receive Date: 20120321
  Receipt Date: 20120314
  Transmission Date: 20120608
  Serious: Yes (Congenital Anomaly)
  Sender: FDA-Public Use
  Company Number: GXKR2012DE001161

PATIENT

DRUGS (2)
  1. FOLSAN [Concomitant]
     Dosage: 5 [MG/D ]
     Route: 064
     Dates: end: 20100106
  2. LAMOTRIGINE [Suspect]
     Dosage: MATERNAL DOSE: 350 [MG/D ]/ GW 0-13: 100 MG/D; GW 13-38.5: 350 MG/D
     Route: 064

REACTIONS (3)
  - ATRIAL SEPTAL DEFECT [None]
  - FOETAL EXPOSURE DURING PREGNANCY [None]
  - VENTRICULAR SEPTAL DEFECT [None]
